FAERS Safety Report 15108099 (Version 2)
Quarter: 2018Q3

REPORT INFORMATION
  Report Type: Report from Study
  Country: None (occurrence: CO)
  Receive Date: 20180704
  Receipt Date: 20180705
  Transmission Date: 20181010
  Serious: Yes (Death, Hospitalization)
  Sender: FDA-Public Use
  Company Number: CO-ABBVIE-18S-036-2408927-00

PATIENT
  Age: 54 Year
  Sex: Male

DRUGS (1)
  1. ZEMPLAR [Suspect]
     Active Substance: PARICALCITOL
     Indication: HYPERPARATHYROIDISM SECONDARY
     Dosage: POST DIALYSIS
     Route: 042
     Dates: start: 20161021, end: 20180521

REACTIONS (4)
  - Arteriovenous fistula occlusion [Fatal]
  - Cardio-respiratory arrest [Fatal]
  - Hypovolaemic shock [Fatal]
  - Haemorrhage [Fatal]

NARRATIVE: CASE EVENT DATE: 20180605
